FAERS Safety Report 4721285-8 (Version None)
Quarter: 2005Q3

REPORT INFORMATION
  Report Type: 
  Country: None (occurrence: None)
  Receive Date: 20050721
  Receipt Date: 20040401
  Transmission Date: 20060218
  Serious: Yes (Other)
  Sender: FDA-Public Use
  Company Number: US-BRISTOL-MYERS SQUIBB COMPANY-12549044

PATIENT
  Age: 78 Year
  Sex: Male
  Weight: 94 kg

DRUGS (6)
  1. COUMADIN [Suspect]
     Indication: CARDIOVASCULAR DISORDER
     Dosage: 5MG DAILY TO VARIOUS DOSES; CURRENTLY ON 7.5MG, 5X'S WEEK + 5MG, 2X'S WEEK(47.5MG WEEK).
     Route: 048
  2. COUMADIN [Suspect]
     Indication: CARDIAC FIBRILLATION
     Dosage: 5MG DAILY TO VARIOUS DOSES; CURRENTLY ON 7.5MG, 5X'S WEEK + 5MG, 2X'S WEEK(47.5MG WEEK).
     Route: 048
  3. LANOXIN [Concomitant]
  4. HYTRIN [Concomitant]
  5. GLUCOPHAGE [Concomitant]
  6. ZOCOR [Concomitant]

REACTIONS (2)
  - INTERNATIONAL NORMALISED RATIO DECREASED [None]
  - NO THERAPEUTIC RESPONSE [None]
